FAERS Safety Report 18992532 (Version 3)
Quarter: 2022Q1

REPORT INFORMATION
  Report Type: Spontaneous
  Country: US (occurrence: US)
  Receive Date: 20210310
  Receipt Date: 20220104
  Transmission Date: 20220423
  Serious: No
  Sender: FDA-Public Use
  Company Number: US-PFIZER INC-2021240219

PATIENT
  Age: 52 Year
  Sex: Female

DRUGS (11)
  1. XELJANZ XR [Suspect]
     Active Substance: TOFACITINIB CITRATE
     Indication: Rheumatoid arthritis
     Dosage: 11 MG, 1X/DAY
     Route: 048
     Dates: start: 202011
  2. XELJANZ XR [Suspect]
     Active Substance: TOFACITINIB CITRATE
     Dosage: 11 MG, DAILY
     Route: 048
  3. XELJANZ XR [Suspect]
     Active Substance: TOFACITINIB CITRATE
     Dosage: 11 MG, DAILY (1 TABLET BY MOUTH ONCE DAILY)
     Route: 048
  4. XELJANZ XR [Suspect]
     Active Substance: TOFACITINIB CITRATE
     Dosage: 11 MG, 1X/DAY
     Route: 048
  5. GABAPENTIN [Concomitant]
     Active Substance: GABAPENTIN
  6. TRAMADOL HCL A [Concomitant]
  7. CITALOPRAM [Concomitant]
     Active Substance: CITALOPRAM HYDROBROMIDE
  8. LISINOPRIL [Concomitant]
     Active Substance: LISINOPRIL
  9. LEVOTHYROXINE SODIUM [Concomitant]
     Active Substance: LEVOTHYROXINE SODIUM
  10. BUPROPION HYDROCHLORIDE [Concomitant]
     Active Substance: BUPROPION HYDROCHLORIDE
  11. ROSUVASTATIN CALCIUM [Concomitant]
     Active Substance: ROSUVASTATIN CALCIUM

REACTIONS (6)
  - Drug ineffective [Unknown]
  - Asthma [Unknown]
  - Bronchospasm [Unknown]
  - Nasopharyngitis [Unknown]
  - Respiratory tract congestion [Unknown]
  - Wheezing [Unknown]
